FAERS Safety Report 10053328 (Version 1)
Quarter: 2014Q2

REPORT INFORMATION
  Report Type: Spontaneous
  Country: IT (occurrence: IT)
  Receive Date: 20140402
  Receipt Date: 20140402
  Transmission Date: 20141212
  Serious: Yes (Death, Other)
  Sender: FDA-Public Use
  Company Number: PHHY2014IT038780

PATIENT
  Age: 78 Year
  Sex: Male

DRUGS (3)
  1. GLIVEC [Suspect]
     Indication: GASTROINTESTINAL STROMAL TUMOUR
     Dosage: 400 MG, PER DAY
     Dates: start: 201001, end: 201101
  2. GLIVEC [Suspect]
     Dosage: 400 MG, DAILY
     Dates: start: 201203
  3. GLIVEC [Suspect]
     Dosage: 600 MG, DAILY

REACTIONS (12)
  - Death [Fatal]
  - Gastrointestinal stromal tumour [Unknown]
  - Malignant neoplasm progression [Unknown]
  - Metastases to bladder [Unknown]
  - Metastases to rectum [Unknown]
  - Lymphadenopathy [Unknown]
  - General physical health deterioration [Unknown]
  - Toxicity to various agents [Unknown]
  - Asthenia [Unknown]
  - Diarrhoea [Unknown]
  - Blood pressure increased [Unknown]
  - Generalised oedema [Unknown]
